FAERS Safety Report 18242085 (Version 3)
Quarter: 2021Q1

REPORT INFORMATION
  Report Type: Spontaneous
  Country: FR (occurrence: FR)
  Receive Date: 20200908
  Receipt Date: 20210222
  Transmission Date: 20210419
  Serious: Yes (Other)
  Sender: FDA-Public Use
  Company Number: FR-SA-2020SA241869

PATIENT
  Age: 37 Year
  Sex: Female

DRUGS (1)
  1. CABLIVI [Suspect]
     Active Substance: CAPLACIZUMAB-YHDP
     Indication: THROMBOTIC THROMBOCYTOPENIC PURPURA
     Dosage: UNK
     Route: 065

REACTIONS (6)
  - Condition aggravated [Unknown]
  - Thrombocytopenia [Unknown]
  - Thrombocytosis [Unknown]
  - Unevaluable event [Unknown]
  - Thrombotic thrombocytopenic purpura [Unknown]
  - Viral infection [Unknown]

NARRATIVE: CASE EVENT DATE: 2020
